FAERS Safety Report 6749074-3 (Version None)
Quarter: 2010Q2

REPORT INFORMATION
  Report Type: 
  Country: None (occurrence: None)
  Receive Date: 20100601
  Receipt Date: 20100525
  Transmission Date: 20101027
  Serious: Yes (Hospitalization)
  Sender: FDA-Public Use
  Company Number: FR-BAYER-201026756GPV

PATIENT
  Age: 74 Year
  Sex: Female

DRUGS (10)
  1. IZILOX [Suspect]
     Indication: TUBERCULOSIS
     Dosage: TOTAL DAILY DOSE: 400 MG  UNIT DOSE: 400 MG
     Route: 048
     Dates: start: 20100202, end: 20100312
  2. IZILOX [Suspect]
     Dosage: TOTAL DAILY DOSE: 400 MG  UNIT DOSE: 400 MG
     Route: 048
     Dates: start: 20100416
  3. MYAMBUTOL [Suspect]
     Indication: TUBERCULOSIS
     Dosage: TOTAL DAILY DOSE: 1200 MG  UNIT DOSE: 400 MG
     Route: 048
     Dates: start: 20100419
  4. MYAMBUTOL [Suspect]
     Dosage: TOTAL DAILY DOSE: 1200 MG  UNIT DOSE: 400 MG
     Route: 048
     Dates: start: 20100121, end: 20100312
  5. PIRILENE [Suspect]
     Indication: TUBERCULOSIS
     Dosage: TOTAL DAILY DOSE: 1 G  UNIT DOSE: 500 MG
     Route: 048
     Dates: start: 20100119, end: 20100312
  6. RIFADIN [Concomitant]
     Indication: TUBERCULOSIS
     Dates: start: 20081101, end: 20080101
  7. RIMIFON [Concomitant]
     Indication: TUBERCULOSIS
     Dates: start: 20100123, end: 20100126
  8. RIMIFON [Concomitant]
     Dates: start: 20081101, end: 20080101
  9. ATENOLOL [Concomitant]
     Dates: start: 20100113, end: 20100312
  10. PARA AMINOSALICYLIC ACID [Concomitant]
     Indication: TUBERCULOSIS

REACTIONS (3)
  - HEPATIC ENZYME INCREASED [None]
  - PYREXIA [None]
  - RASH [None]
